FAERS Safety Report 19919234 (Version 4)
Quarter: 2022Q1

REPORT INFORMATION
  Report Type: Spontaneous
  Country: CA (occurrence: CA)
  Receive Date: 20211004
  Receipt Date: 20220217
  Transmission Date: 20220423
  Serious: Yes (Other)
  Sender: FDA-Public Use
  Company Number: CA-PFIZER INC-2021514655

PATIENT
  Age: 42 Year
  Sex: Female
  Weight: 123 kg

DRUGS (6)
  1. RUXIENCE [Suspect]
     Active Substance: RITUXIMAB-PVVR
     Indication: Sarcoidosis
     Dosage: 1000 MG, CYCLIC DAY 1 AND DAY 15
     Route: 041
  2. RUXIENCE [Suspect]
     Active Substance: RITUXIMAB-PVVR
     Indication: Interstitial lung disease
     Dosage: 1000 MG, SINGLE
     Route: 042
     Dates: start: 20210901, end: 20210901
  3. RUXIENCE [Suspect]
     Active Substance: RITUXIMAB-PVVR
     Indication: Connective tissue disorder
  4. MYCOPHENOLATE MOFETIL [Concomitant]
     Active Substance: MYCOPHENOLATE MOFETIL
     Indication: Interstitial lung disease
     Dosage: 1 G, 3X/DAY
     Dates: start: 20200102
  5. PANTOPRAZOLE MAGNESIUM [Concomitant]
     Active Substance: PANTOPRAZOLE MAGNESIUM
     Indication: Gastrooesophageal reflux disease
     Dosage: 40 MG, 1X/DAY
     Dates: start: 20210119
  6. LEVOTHYROXINE [Concomitant]
     Active Substance: LEVOTHYROXINE
     Indication: Hypothyroidism
     Dosage: 180 MG, 1X/DAY

REACTIONS (5)
  - Pruritus [Unknown]
  - Urticaria [Unknown]
  - Throat tightness [Unknown]
  - Infusion related reaction [Recovered/Resolved]
  - Off label use [Unknown]

NARRATIVE: CASE EVENT DATE: 20210618
